FAERS Safety Report 5984020-1 (Version None)
Quarter: 2008Q4

REPORT INFORMATION
  Report Type: 
  Country: None (occurrence: None)
  Receive Date: 20081205
  Receipt Date: 20081205
  Transmission Date: 20090506
  Serious: No
  Sender: FDA-Public Use
  Company Number: None

PATIENT
  Age: 45 Year
  Sex: Male

DRUGS (1)
  1. MOMETASONE FUROATE [Suspect]
     Indication: ASTHMA
     Dosage: 2 PUFF(S) EVERY DAY INHALE
     Route: 055
     Dates: start: 20060509, end: 20080327

REACTIONS (2)
  - DRY EYE [None]
  - INTRAOCULAR PRESSURE INCREASED [None]
